FAERS Safety Report 25790893 (Version 1)
Quarter: 2025Q3

REPORT INFORMATION
  Report Type: Spontaneous
  Country: US (occurrence: US)
  Receive Date: 20250911
  Receipt Date: 20250911
  Transmission Date: 20251020
  Serious: Yes (Life-Threatening, Hospitalization)
  Sender: MYLAN
  Company Number: US-MYLANLABS-2025M1077482

PATIENT
  Age: 52 Year
  Sex: Female

DRUGS (8)
  1. VANCOMYCIN [Suspect]
     Active Substance: VANCOMYCIN
     Indication: Abdominal abscess
  2. VANCOMYCIN [Suspect]
     Active Substance: VANCOMYCIN
     Indication: Pneumonia serratia
  3. LACTULOSE [Suspect]
     Active Substance: LACTULOSE
     Indication: Hyperammonaemia
  4. RIFAXIMIN [Suspect]
     Active Substance: RIFAXIMIN
     Indication: Hyperammonaemia
  5. MEROPENEM [Suspect]
     Active Substance: MEROPENEM
     Indication: Abdominal abscess
  6. MEROPENEM [Suspect]
     Active Substance: MEROPENEM
     Indication: Pneumonia serratia
  7. FLUCONAZOLE [Suspect]
     Active Substance: FLUCONAZOLE
     Indication: Abdominal abscess
  8. VITAMIN K [Concomitant]
     Active Substance: PHYTONADIONE
     Indication: Supportive care

REACTIONS (2)
  - Drug ineffective [Unknown]
  - Off label use [Unknown]
